FAERS Safety Report 21508001 (Version 3)
Quarter: 2024Q2

REPORT INFORMATION
  Report Type: Other
  Country: ES (occurrence: ES)
  Receive Date: 20221026
  Receipt Date: 20240401
  Transmission Date: 20240716
  Serious: Yes (Other)
  Sender: FDA-Public Use
  Company Number: ES-STADA-258468

PATIENT
  Sex: Male

DRUGS (34)
  1. RITUXIMAB [Suspect]
     Active Substance: RITUXIMAB
     Indication: Epstein-Barr virus infection reactivation
     Dosage: RECEIVED ON 2 OCCASIONS?CONCENTRATE FOR SOLUTION FOR INFUSION
     Route: 065
  2. MYCOPHENOLATE MOFETIL [Suspect]
     Active Substance: MYCOPHENOLATE MOFETIL
     Indication: Acute graft versus host disease
     Route: 065
  3. MYCOPHENOLATE MOFETIL [Suspect]
     Active Substance: MYCOPHENOLATE MOFETIL
     Indication: Acute graft versus host disease in skin
  4. MYCOPHENOLIC ACID [Suspect]
     Active Substance: MYCOPHENOLIC ACID
     Indication: Prophylaxis against graft versus host disease
     Route: 065
  5. MYCOPHENOLIC ACID [Suspect]
     Active Substance: MYCOPHENOLIC ACID
     Indication: Acute graft versus host disease
  6. FLUDARABINE [Suspect]
     Active Substance: FLUDARABINE PHOSPHATE
     Indication: Bone marrow conditioning regimen
     Dosage: DURING SECOND PERIPHERAL BLOOD HSCT
     Route: 065
  7. FLUDARABINE [Suspect]
     Active Substance: FLUDARABINE PHOSPHATE
     Indication: Allogenic stem cell transplantation
     Dosage: REDUCED INTENSITY CONDITIONING
     Route: 065
  8. CYCLOPHOSPHAMIDE [Suspect]
     Active Substance: CYCLOPHOSPHAMIDE
     Indication: Bone marrow conditioning regimen
     Dosage: AS PER SHOP/ALL 2008 PROTOCOL
     Route: 065
  9. CYCLOPHOSPHAMIDE [Suspect]
     Active Substance: CYCLOPHOSPHAMIDE
     Indication: Acute lymphocytic leukaemia refractory
     Dosage: DURING SECOND HSCT
     Route: 065
  10. CYCLOPHOSPHAMIDE [Suspect]
     Active Substance: CYCLOPHOSPHAMIDE
     Dosage: UNK, AS PER SHOP/ALL 2008 PROTOCOL
     Route: 065
  11. BUSULFAN [Suspect]
     Active Substance: BUSULFAN
     Indication: Bone marrow conditioning regimen
     Dosage: DURING SECOND PERIPHERAL BLOOD HSCT; DOSE-ADJUSTED
     Route: 065
  12. BUSULFAN [Suspect]
     Active Substance: BUSULFAN
     Dosage: UNK, DURING SECOND HSCT
     Route: 065
  13. THIOTEPA [Suspect]
     Active Substance: THIOTEPA
     Indication: Bone marrow conditioning regimen
     Dosage: DURING SECOND PERIPHERAL BLOOD HSCT
     Route: 065
  14. CYTARABINE [Suspect]
     Active Substance: CYTARABINE
     Indication: Acute lymphocytic leukaemia
     Dosage: AS PER SHOP/ALL 2008 PROTOCOL
     Route: 065
  15. CYTARABINE [Suspect]
     Active Substance: CYTARABINE
     Indication: Acute lymphocytic leukaemia refractory
  16. ETOPOSIDE [Suspect]
     Active Substance: ETOPOSIDE
     Indication: Bone marrow conditioning regimen
     Dosage: AS PER SHOP/ALL 2008 PROTOCOL
     Route: 065
  17. ETOPOSIDE [Suspect]
     Active Substance: ETOPOSIDE
     Indication: Griscelli syndrome
     Route: 065
  18. METHOTREXATE [Suspect]
     Active Substance: METHOTREXATE
     Indication: Prophylaxis against graft versus host disease
     Route: 065
  19. CLOFARABINE [Suspect]
     Active Substance: CLOFARABINE
     Indication: Acute lymphocytic leukaemia
     Dosage: AS PER SHOP/ALL 2008 PROTOCOL
     Route: 065
  20. SIROLIMUS [Suspect]
     Active Substance: SIROLIMUS
     Indication: Acute graft versus host disease
     Dosage: DURING SECOND PERIPHERAL BLOOD HSCT, REDUCED INTENSITY CONDITIONING
     Route: 065
  21. SIROLIMUS [Suspect]
     Active Substance: SIROLIMUS
     Route: 065
  22. BUDESONIDE [Suspect]
     Active Substance: BUDESONIDE
     Indication: Acute graft versus host disease
     Route: 065
  23. PRIVIGEN [Suspect]
     Active Substance: HUMAN IMMUNOGLOBULIN G
     Indication: Hypogammaglobulinaemia
     Dosage: FROM THE FIRST TRANSPLANTATION AT INCREASING DOSES THAT WENT FROM 0.27 TO 0.66 G/KG EVERY 4 WEEKS
     Route: 065
  24. DEXAMETHASONE [Suspect]
     Active Substance: DEXAMETHASONE
     Indication: Griscelli syndrome
     Route: 065
  25. ALEMTUZUMAB [Suspect]
     Active Substance: ALEMTUZUMAB
     Indication: Bone marrow conditioning regimen
     Dosage: UNK, REDUCED-INTENSITY CONDITIONING
     Route: 065
  26. MELPHALAN [Suspect]
     Active Substance: MELPHALAN
     Indication: Bone marrow conditioning regimen
     Route: 065
  27. TACROLIMUS [Suspect]
     Active Substance: TACROLIMUS
     Indication: Acute graft versus host disease
     Route: 065
  28. CYCLOSPORINE [Suspect]
     Active Substance: CYCLOSPORINE
     Indication: Prophylaxis against graft versus host disease
     Dosage: DURING SECOND PERIPHERAL BLOOD HSCT
     Route: 065
  29. CYCLOSPORINE [Suspect]
     Active Substance: CYCLOSPORINE
     Indication: Griscelli syndrome
     Route: 065
  30. CYCLOSPORINE [Suspect]
     Active Substance: CYCLOSPORINE
     Route: 065
  31. COTRIMOXAZOLE [Suspect]
     Active Substance: SULFAMETHOXAZOLE\TRIMETHOPRIM
     Indication: Antifungal prophylaxis
     Route: 065
  32. COTRIMOXAZOLE [Suspect]
     Active Substance: SULFAMETHOXAZOLE\TRIMETHOPRIM
     Dosage: PNEUMOCYSTIS JIROVECII PROPHYLAXIS
     Route: 065
  33. PRIVIGEN [Concomitant]
     Active Substance: HUMAN IMMUNOGLOBULIN G
     Indication: Immunoglobulin therapy
     Dosage: .28 TO 0.43/KG EVERY 4 WEEKS
  34. HIZENTRA [Concomitant]
     Active Substance: HUMAN IMMUNOGLOBULIN G
     Indication: Immunoglobulin therapy
     Dosage: 0.15 G/KG PER WEEK

REACTIONS (6)
  - Epstein-Barr virus infection reactivation [Unknown]
  - Hypogammaglobulinaemia [Recovered/Resolved]
  - Graft versus host disease in gastrointestinal tract [Unknown]
  - Graft versus host disease in skin [Unknown]
  - Graft versus host disease in liver [Unknown]
  - Off label use [Unknown]
